FAERS Safety Report 8543745-4 (Version None)
Quarter: 2012Q3

REPORT INFORMATION
  Report Type: 
  Country: None (occurrence: None)
  Receive Date: 20120717
  Receipt Date: 20120702
  Transmission Date: 20120928
  Serious: Yes (Other)
  Sender: FDA-Public Use
  Company Number: JPI-P-015619

PATIENT
  Age: 59 Year
  Sex: Female

DRUGS (6)
  1. CLONAZEPAM [Suspect]
     Indication: PRODUCT USED FOR UNKNOWN INDICATION
  2. LORAZEPAM [Concomitant]
  3. XYREM [Suspect]
     Indication: FIBROMYALGIA
     Dosage: 4.5 GM (2.25 GM, 2 IN 1 D), ORAL; ORAL; 6 MG (3 GM, 2 IN 1 D), ORAL
     Route: 048
     Dates: start: 20110525
  4. XYREM [Suspect]
     Indication: FIBROMYALGIA
     Dosage: 4.5 GM (2.25 GM, 2 IN 1 D), ORAL; ORAL; 6 MG (3 GM, 2 IN 1 D), ORAL
     Route: 048
     Dates: start: 20050505
  5. VALACYCLOVIR HYDROCHLORIDE [Concomitant]
  6. AMPHETAMINE, DEXTROAMPHETAMINE MIXED SALTS [Concomitant]

REACTIONS (23)
  - SPINAL COLUMN STENOSIS [None]
  - FOOT DEFORMITY [None]
  - PRURITUS [None]
  - TOOTHACHE [None]
  - FATIGUE [None]
  - RESTLESSNESS [None]
  - PAIN IN EXTREMITY [None]
  - HYPOAESTHESIA [None]
  - TOOTH EROSION [None]
  - INTERVERTEBRAL DISC PROTRUSION [None]
  - ARTHRITIS [None]
  - AGITATION [None]
  - DRY SKIN [None]
  - PERIODONTAL DISEASE [None]
  - DRUG DOSE OMISSION [None]
  - INTERVERTEBRAL DISC DEGENERATION [None]
  - THINKING ABNORMAL [None]
  - DENTAL CARIES [None]
  - STRESS [None]
  - CRYING [None]
  - DEATH OF RELATIVE [None]
  - ANXIETY [None]
  - SEBORRHOEA [None]
